FAERS Safety Report 8480702-0 (Version None)
Quarter: 2012Q3

REPORT INFORMATION
  Report Type: 
  Country: None (occurrence: None)
  Receive Date: 20120702
  Receipt Date: 20120618
  Transmission Date: 20120928
  Serious: Yes (Hospitalization)
  Sender: FDA-Public Use
  Company Number: PL-RANBAXY-2012RR-57398

PATIENT
  Age: 8 Year
  Sex: Male

DRUGS (2)
  1. TACROLIMUS [Suspect]
     Indication: LIVER TRANSPLANT
     Dosage: UNK
     Route: 065
  2. AMOXICILLIN AND CLAVULANATE POTASSIUM [Suspect]
     Indication: UPPER RESPIRATORY TRACT INFECTION
     Dosage: 25/3.6 MG/KG/DAY
     Route: 065

REACTIONS (2)
  - CHOLESTATIC LIVER INJURY [None]
  - DRUG INTERACTION [None]
